FAERS Safety Report 10045495 (Version 2)
Quarter: 2014Q2

REPORT INFORMATION
  Report Type: Spontaneous
  Country: US (occurrence: US)
  Receive Date: 20140328
  Receipt Date: 20140509
  Transmission Date: 20141212
  Serious: No
  Sender: FDA-Public Use
  Company Number: US-ASTRAZENECA-2014SE04731

PATIENT
  Age: 65 Year
  Sex: Female
  Weight: 97.1 kg

DRUGS (20)
  1. METOPROLOL SUCCINATE [Suspect]
     Indication: HYPERTENSION
     Route: 048
     Dates: start: 2012
  2. METOPROLOL SUCCINATE [Suspect]
     Indication: ATRIAL FIBRILLATION
     Route: 048
     Dates: start: 2012
  3. BRILINTA [Suspect]
     Indication: STENT PLACEMENT
     Route: 048
     Dates: start: 201310, end: 20131217
  4. BRILINTA [Suspect]
     Indication: ANTIPLATELET THERAPY
     Route: 048
     Dates: start: 201310, end: 20131217
  5. SULPHUR DRUG (UNSPECIFIED) [Suspect]
     Route: 065
  6. CLOPIDOGREL [Concomitant]
     Indication: STENT PLACEMENT
     Dates: start: 201312
  7. ASPIRIN [Concomitant]
     Indication: STENT PLACEMENT
     Dates: start: 201310
  8. ASPIRIN [Concomitant]
     Indication: SUPPLEMENTATION THERAPY
     Dates: start: 201310
  9. ASPIRIN [Concomitant]
     Indication: STENT PLACEMENT
     Dates: start: 201312
  10. ASPIRIN [Concomitant]
     Indication: SUPPLEMENTATION THERAPY
     Dates: start: 201312
  11. HYDROCHLOROTHIAZIDE [Concomitant]
     Indication: DIURETIC THERAPY
  12. LEVOTHYROXINE [Concomitant]
     Indication: THYROID DISORDER
  13. UNSPECIFIED BLOOD PRESSURE DRUG [Concomitant]
  14. FENOFIBRATE [Concomitant]
  15. DICLOFENAC [Concomitant]
  16. PRAVASTATIN [Concomitant]
  17. FOLBIC [Concomitant]
  18. FISH OIL [Concomitant]
  19. TIMOLOL OPTHALMIC [Concomitant]
  20. XALATAN OPTHALMIC [Concomitant]

REACTIONS (6)
  - Discomfort [Unknown]
  - Epistaxis [Unknown]
  - Dyspnoea [Unknown]
  - Fatigue [Unknown]
  - Drug hypersensitivity [Unknown]
  - Contusion [Unknown]
